FAERS Safety Report 21054723 (Version 1)
Quarter: 2022Q3

REPORT INFORMATION
  Report Type: Report from Study
  Country: JP (occurrence: None)
  Receive Date: 20220707
  Receipt Date: 20220707
  Transmission Date: 20221027
  Serious: Yes (Other)
  Sender: FDA-Public Use
  Company Number: JP-Merck Healthcare KGaA-9334442

PATIENT
  Age: 72 Year
  Sex: Male

DRUGS (1)
  1. BAVENCIO [Suspect]
     Active Substance: AVELUMAB
     Indication: Transitional cell carcinoma
     Route: 041

REACTIONS (5)
  - Ketoacidosis [Unknown]
  - Altered state of consciousness [Unknown]
  - Blood glucose increased [Unknown]
  - Fulminant type 1 diabetes mellitus [Unknown]
  - Abdominal pain lower [Unknown]
